APPROVED DRUG PRODUCT: EPSOLAY
Active Ingredient: BENZOYL PEROXIDE
Strength: 5%
Dosage Form/Route: CREAM;TOPICAL
Application: N214510 | Product #001
Applicant: MAYNE PHARMA LLC
Approved: Apr 22, 2022 | RLD: Yes | RS: Yes | Type: RX

PATENTS:
Patent 10945987 | Expires: Feb 19, 2040
Patent 11426378 | Expires: Aug 18, 2040
Patent 12295935 | Expires: Dec 27, 2040
Patent 12257348 | Expires: May 23, 2041
Patent 11628155 | Expires: Dec 27, 2040
Patent 11877997 | Expires: Feb 19, 2040
Patent 10933046 | Expires: Feb 19, 2040
Patent 9868103 | Expires: Aug 8, 2028
Patent 9687465 | Expires: Nov 27, 2032
Patent 11541026 | Expires: Feb 19, 2040
Patent 11986456 | Expires: Feb 19, 2040
Patent 11865100 | Expires: Feb 19, 2040
Patent 12350382 | Expires: Feb 3, 2028
Patent 12156946 | Expires: Feb 3, 2028